FAERS Safety Report 11077375 (Version 1)
Quarter: 2015Q2

REPORT INFORMATION
  Report Type: Spontaneous
  Country: DE (occurrence: DE)
  Receive Date: 20150430
  Receipt Date: 20150430
  Transmission Date: 20150821
  Serious: Yes (Congenital Anomaly)
  Sender: FDA-Public Use
  Company Number: DE-AMGEN-DEUSP2015040540

PATIENT
  Sex: Male
  Weight: 3.22 kg

DRUGS (1)
  1. PROCORALAN [Suspect]
     Active Substance: IVABRADINE
     Indication: EXPOSURE DURING PREGNANCY
     Dosage: 5 MG, UNK
     Route: 064
     Dates: start: 201407, end: 20140809

REACTIONS (2)
  - Foetal exposure during pregnancy [Unknown]
  - Congenital anomaly [Unknown]

NARRATIVE: CASE EVENT DATE: 201407
